FAERS Safety Report 7328161-5 (Version None)
Quarter: 2011Q1

REPORT INFORMATION
  Report Type: 
  Country: None (occurrence: None)
  Receive Date: 20110222
  Receipt Date: 20110208
  Transmission Date: 20110831
  Serious: Yes (Other)
  Sender: FDA-Public Use
  Company Number: TPA2011A00550

PATIENT
  Age: 65 Year
  Sex: Male

DRUGS (14)
  1. VASOTEC [Concomitant]
  2. CELEXA [Concomitant]
  3. ASPIRIN [Concomitant]
  4. METFORMIN (METFORMIN) [Concomitant]
  5. KLOR-CON [Concomitant]
  6. ACTOS [Suspect]
     Indication: DIABETES MELLITUS
     Dosage: 15 MG, 1 IN 1 D, PER ORAL; 15 MG, 1 IN1 D, PER ORAL
     Route: 048
     Dates: start: 20100923
  7. ACTOS [Suspect]
     Indication: DIABETES MELLITUS
     Dosage: 15 MG, 1 IN 1 D, PER ORAL; 15 MG, 1 IN1 D, PER ORAL
     Route: 048
     Dates: start: 20050101, end: 20080108
  8. FISH OIL (FISH OIL) [Concomitant]
  9. VITAMIN D [Concomitant]
  10. WELCHOL [Concomitant]
  11. PRAVASTATIN [Concomitant]
  12. METOPROLOL (METOPROLOL) [Concomitant]
  13. GLIPIZIDE XL (GLIPIZIDE) [Concomitant]
  14. HYDROCHLOROTHIZIDE (HYDROCHLOROTHIAZIDE) [Concomitant]

REACTIONS (9)
  - TREATMENT NONCOMPLIANCE [None]
  - ORAL PAIN [None]
  - WEIGHT INCREASED [None]
  - CORONARY ARTERY DISEASE [None]
  - BLOOD GLUCOSE INCREASED [None]
  - SINUSITIS [None]
  - BLOOD CHOLESTEROL INCREASED [None]
  - SENSITIVITY OF TEETH [None]
  - INFLUENZA LIKE ILLNESS [None]
